FAERS Safety Report 17909511 (Version 1)
Quarter: 2020Q2

REPORT INFORMATION
  Report Type: Spontaneous
  Country: US (occurrence: US)
  Receive Date: 20200618
  Receipt Date: 20200618
  Transmission Date: 20200714
  Serious: No
  Sender: FDA-Public Use
  Company Number: US-LUPIN PHARMACEUTICALS INC.-2020-02466

PATIENT
  Age: 63 Year
  Sex: Female

DRUGS (6)
  1. DULOXETINE. [Suspect]
     Active Substance: DULOXETINE
     Dosage: 60 MILLIGRAM, QD
     Route: 065
  2. VENLAFAXINE [Suspect]
     Active Substance: VENLAFAXINE HYDROCHLORIDE
     Dosage: 75 MILLIGRAM
     Route: 065
  3. DULOXETINE. [Suspect]
     Active Substance: DULOXETINE
     Indication: NOTALGIA PARAESTHETICA
     Dosage: 60 MILLIGRAM, QD
     Route: 065
  4. DULOXETINE. [Suspect]
     Active Substance: DULOXETINE
     Dosage: 60 MILLIGRAM, BID
     Route: 065
  5. GABAPENTIN. [Suspect]
     Active Substance: GABAPENTIN
     Indication: NOTALGIA PARAESTHETICA
     Dosage: UNK
     Route: 065
  6. VENLAFAXINE [Suspect]
     Active Substance: VENLAFAXINE HYDROCHLORIDE
     Indication: NOTALGIA PARAESTHETICA
     Dosage: UNK
     Route: 065

REACTIONS (3)
  - Drug ineffective [Unknown]
  - Sedation [Unknown]
  - Drug intolerance [Unknown]
